FAERS Safety Report 17751823 (Version 2)
Quarter: 2020Q3

REPORT INFORMATION
  Report Type: Spontaneous
  Country: CA (occurrence: CA)
  Receive Date: 20200506
  Receipt Date: 20200708
  Transmission Date: 20201102
  Serious: Yes (Other)
  Sender: FDA-Public Use
  Company Number: CA-PFIZER INC-2020179311

PATIENT
  Age: 54 Year
  Sex: Female

DRUGS (3)
  1. NORPROLAC [Concomitant]
     Active Substance: QUINAGOLIDE HYDROCHLORIDE
     Dosage: 75 UG, 2X/DAY
  2. SANDOSTATIN LAR DEPOT [Concomitant]
     Active Substance: OCTREOTIDE ACETATE
     Dosage: 30 MG
  3. SOMAVERT [Suspect]
     Active Substance: PEGVISOMANT
     Indication: ACROMEGALY
     Dosage: 20 MG, 1X/DAY
     Route: 058
     Dates: start: 20191209

REACTIONS (3)
  - Diverticulitis [Unknown]
  - Hepatic cirrhosis [Unknown]
  - Insulin-like growth factor increased [Unknown]
